FAERS Safety Report 4313644-2 (Version None)
Quarter: 2004Q1

REPORT INFORMATION
  Report Type: 
  Country: None (occurrence: None)
  Receive Date: 20040308
  Receipt Date: 20040226
  Transmission Date: 20041129
  Serious: Yes (Hospitalization)
  Sender: FDA-Public Use
  Company Number: PHBS2004US02810

PATIENT
  Age: 4 Year
  Sex: Male

DRUGS (5)
  1. CARBAMAZEPINE [Suspect]
     Route: 065
  2. DEXTRO AMPHETAMINE SULFATE TAB [Concomitant]
     Route: 065
  3. MIRTAZAPINE [Concomitant]
     Route: 065
  4. PSEUDOEPHEDRINE HCL [Concomitant]
  5. ANTI-HISTAMINE TAB [Concomitant]

REACTIONS (8)
  - COMA [None]
  - DRUG LEVEL INCREASED [None]
  - HYPERGLYCAEMIA [None]
  - HYPOKALAEMIA [None]
  - HYPOTONIA [None]
  - INTENTIONAL OVERDOSE [None]
  - LETHARGY [None]
  - PALLOR [None]
